FAERS Safety Report 5768232-8 (Version None)
Quarter: 2008Q2

REPORT INFORMATION
  Report Type: 
  Country: None (occurrence: None)
  Receive Date: 20080609
  Receipt Date: 20080529
  Transmission Date: 20081010
  Serious: Yes (Death)
  Sender: FDA-Public Use
  Company Number: GXKR2008AT04882

PATIENT
  Age: 50 Year
  Sex: Female

DRUGS (5)
  1. PREDNISOLONE [Suspect]
     Indication: IMMUNOSUPPRESSION
  2. TACROLIMUS [Suspect]
     Indication: IMMUNOSUPPRESSION
  3. SIROLIMUS (SIROLIMUS) [Suspect]
     Indication: IMMUNOSUPPRESSION
  4. CASPOFUNGIN (CASPOFUNGIN) [Suspect]
     Indication: CANDIDIASIS
  5. IMMUNOGLOBULINS (IMMUNOGLOBULINS) [Suspect]
     Indication: IMMUNOSUPPRESSION

REACTIONS (4)
  - COMA [None]
  - GENERAL PHYSICAL HEALTH DETERIORATION [None]
  - MULTI-ORGAN FAILURE [None]
  - ZYGOMYCOSIS [None]
